FAERS Safety Report 5498784-7 (Version None)
Quarter: 2007Q4

REPORT INFORMATION
  Report Type: 
  Country: None (occurrence: None)
  Receive Date: 20071026
  Receipt Date: 20070718
  Transmission Date: 20080405
  Serious: No
  Sender: FDA-Public Use
  Company Number: A0664823A

PATIENT
  Age: 78 Year
  Sex: Male

DRUGS (6)
  1. ADVAIR DISKUS 100/50 [Suspect]
     Route: 055
     Dates: start: 20070711
  2. WARFARIN [Concomitant]
  3. LOPRESSOR [Concomitant]
  4. ZOCOR [Concomitant]
  5. CILOSTAZOL [Concomitant]
  6. METOPROLOL [Concomitant]

REACTIONS (1)
  - DYSURIA [None]
